FAERS Safety Report 19498954 (Version 64)
Quarter: 2024Q3

REPORT INFORMATION
  Report Type: Spontaneous
  Country: GB (occurrence: None)
  Receive Date: 20210707
  Receipt Date: 20240930
  Transmission Date: 20241017
  Serious: Yes (Hospitalization, Other)
  Sender: ORION
  Company Number: GB-PFIZER INC-2019511224

PATIENT
  Age: 68 Year
  Sex: Female
  Weight: 92 kg

DRUGS (271)
  1. METHOTREXATE [Suspect]
     Active Substance: METHOTREXATE
     Indication: Rheumatoid arthritis
     Dosage: 17.5 MILLIGRAM, Q.W., UNK UNK, Q.W., WEEKLY, AT 17.5 (UNKNOWN UNIT)
     Dates: start: 20100917
  2. METHOTREXATE [Suspect]
     Active Substance: METHOTREXATE
     Indication: Medication error
  3. METHOTREXATE [Suspect]
     Active Substance: METHOTREXATE
     Dosage: (AT 17.5, WEEKLY)
     Dates: start: 20100917
  4. METHOTREXATE [Suspect]
     Active Substance: METHOTREXATE
     Dosage: 17.5 MILLIGRAM, Q.W., UNK UNK, Q.W., WEEKLY, AT 17.5 (UNKNOWN UNIT)
     Dates: start: 20100917
  5. METHOTREXATE [Suspect]
     Active Substance: METHOTREXATE
     Dosage: (AT 17.5, WEEKLY)
     Dates: start: 20100917
  6. METHOTREXATE [Suspect]
     Active Substance: METHOTREXATE
  7. METHOTREXATE [Suspect]
     Active Substance: METHOTREXATE
  8. METHOTREXATE [Suspect]
     Active Substance: METHOTREXATE
  9. METHOTREXATE [Suspect]
     Active Substance: METHOTREXATE
     Dates: start: 20100917
  10. METHOTREXATE [Suspect]
     Active Substance: METHOTREXATE
     Dosage: 17.5 MILLIGRAM, Q.W., UNK UNK, Q.W., WEEKLY, AT 17.5 (UNKNOWN UNIT)
     Dates: start: 20100917
  11. METHOTREXATE [Suspect]
     Active Substance: METHOTREXATE
     Dates: start: 20100917
  12. METHOTREXATE [Suspect]
     Active Substance: METHOTREXATE
     Dosage: 18 MG, PER WEEK (UNKNOWN, WEEKLY, QW (AT 17.5, WEEKLY))
     Dates: start: 20100917
  13. METHOTREXATE [Suspect]
     Active Substance: METHOTREXATE
  14. METHOTREXATE [Suspect]
     Active Substance: METHOTREXATE
  15. ENBREL [Suspect]
     Active Substance: ETANERCEPT
     Indication: Rheumatoid arthritis
     Dosage: MYCLIC PENS
     Dates: start: 20100917
  16. ENBREL [Suspect]
     Active Substance: ETANERCEPT
     Dosage: MYCLIC PENS
     Dates: start: 20210917
  17. ENBREL [Suspect]
     Active Substance: ETANERCEPT
  18. ENBREL [Suspect]
     Active Substance: ETANERCEPT
     Dosage: MYCLIC PEN
  19. ENBREL [Suspect]
     Active Substance: ETANERCEPT
     Dosage: MYCLIC PENS
     Dates: start: 20100917
  20. ENBREL [Suspect]
     Active Substance: ETANERCEPT
     Dosage: MYCLIC PENS
     Dates: start: 20210917
  21. ENBREL [Suspect]
     Active Substance: ETANERCEPT
     Dosage: MYCLIC PEN
  22. CIPROFLOXACIN [Suspect]
     Active Substance: CIPROFLOXACIN
     Indication: Abdominal discomfort
     Dates: start: 20100917
  23. CIPROFLOXACIN [Suspect]
     Active Substance: CIPROFLOXACIN
     Indication: Depression
     Dates: start: 20200917
  24. CIPROFLOXACIN [Suspect]
     Active Substance: CIPROFLOXACIN
     Indication: Rheumatoid arthritis
  25. CIPROFLOXACIN [Suspect]
     Active Substance: CIPROFLOXACIN
     Dates: start: 20200917
  26. CIPROFLOXACIN [Suspect]
     Active Substance: CIPROFLOXACIN
  27. CIPROFLOXACIN [Suspect]
     Active Substance: CIPROFLOXACIN
     Dates: start: 20100917
  28. CIPROFLOXACIN [Suspect]
     Active Substance: CIPROFLOXACIN
     Dates: start: 20100917
  29. CIPROFLOXACIN [Suspect]
     Active Substance: CIPROFLOXACIN
     Dosage: BATCH AND LOT TESTED AND FOUND WITHIN SPECIFICATIONS
     Dates: start: 20100917
  30. CIPROFLOXACIN [Suspect]
     Active Substance: CIPROFLOXACIN
  31. VENLAFAXINE HYDROCHLORIDE [Suspect]
     Active Substance: VENLAFAXINE HYDROCHLORIDE
     Indication: Rheumatoid arthritis
  32. VENLAFAXINE HYDROCHLORIDE [Suspect]
     Active Substance: VENLAFAXINE HYDROCHLORIDE
     Indication: Depression
  33. VENLAFAXINE HYDROCHLORIDE [Suspect]
     Active Substance: VENLAFAXINE HYDROCHLORIDE
  34. VENLAFAXINE HYDROCHLORIDE [Suspect]
     Active Substance: VENLAFAXINE HYDROCHLORIDE
  35. VENLAFAXINE HYDROCHLORIDE [Suspect]
     Active Substance: VENLAFAXINE HYDROCHLORIDE
  36. VENLAFAXINE HYDROCHLORIDE [Suspect]
     Active Substance: VENLAFAXINE HYDROCHLORIDE
  37. VENLAFAXINE HYDROCHLORIDE [Suspect]
     Active Substance: VENLAFAXINE HYDROCHLORIDE
     Dosage: 225 MG, DAILY, ONCE A DAY, PROLONGED RELEASE
  38. OMEPRAZOLE [Suspect]
     Active Substance: OMEPRAZOLE
     Indication: Abdominal discomfort
     Dosage: BATCH AND LOT TESTED AND FOUND WITHIN SPECIFICATIONS
     Dates: start: 20100917
  39. OMEPRAZOLE [Suspect]
     Active Substance: OMEPRAZOLE
     Dates: start: 20100917
  40. OMEPRAZOLE [Suspect]
     Active Substance: OMEPRAZOLE
     Dosage: 20 MG, 2X/DAY FOR STOMACH
     Dates: start: 20100917
  41. OMEPRAZOLE [Suspect]
     Active Substance: OMEPRAZOLE
     Dates: start: 20200917
  42. OMEPRAZOLE [Suspect]
     Active Substance: OMEPRAZOLE
     Dosage: 480 MILLIGRAM DAILY; 20 MG, 2X/DAY
  43. OMEPRAZOLE [Suspect]
     Active Substance: OMEPRAZOLE
     Dosage: 480 MILLIGRAM DAILY; 20 MG, 2X/DAY
  44. OMEPRAZOLE [Suspect]
     Active Substance: OMEPRAZOLE
     Dosage: 20 MG, 4 TIMES PER DAY
     Dates: start: 20100917
  45. OMEPRAZOLE [Suspect]
     Active Substance: OMEPRAZOLE
     Dosage: 20 MG, 2X/DAY
     Dates: start: 20100917
  46. OMEPRAZOLE [Suspect]
     Active Substance: OMEPRAZOLE
     Dates: start: 20100917
  47. OMEPRAZOLE [Suspect]
     Active Substance: OMEPRAZOLE
     Dates: start: 20100917
  48. OMEPRAZOLE [Suspect]
     Active Substance: OMEPRAZOLE
     Dosage: 20 MG, 4 TIMES PER DAY
     Dates: start: 20100917
  49. OMEPRAZOLE [Suspect]
     Active Substance: OMEPRAZOLE
  50. OMEPRAZOLE [Suspect]
     Active Substance: OMEPRAZOLE
  51. OMEPRAZOLE [Suspect]
     Active Substance: OMEPRAZOLE
     Dates: start: 20200917
  52. OMEPRAZOLE [Suspect]
     Active Substance: OMEPRAZOLE
  53. OMEPRAZOLE [Suspect]
     Active Substance: OMEPRAZOLE
  54. OMEPRAZOLE [Suspect]
     Active Substance: OMEPRAZOLE
  55. OMEPRAZOLE [Suspect]
     Active Substance: OMEPRAZOLE
  56. OMEPRAZOLE [Suspect]
     Active Substance: OMEPRAZOLE
     Dosage: 480 MILLIGRAM DAILY; 20 MG, 2X/DAY
  57. OMEPRAZOLE [Suspect]
     Active Substance: OMEPRAZOLE
     Dosage: 480 MILLIGRAM DAILY; 20 MG, 2X/DAY
  58. OMEPRAZOLE [Suspect]
     Active Substance: OMEPRAZOLE
  59. OMEPRAZOLE [Suspect]
     Active Substance: OMEPRAZOLE
     Dates: start: 20100917
  60. OMEPRAZOLE [Suspect]
     Active Substance: OMEPRAZOLE
     Dosage: 20 MG EVERY 1 HOUR
  61. IRBESARTAN [Suspect]
     Active Substance: IRBESARTAN
     Indication: Abdominal discomfort
     Dates: start: 20100917
  62. IRBESARTAN [Suspect]
     Active Substance: IRBESARTAN
     Indication: Depression
     Dates: start: 20100917
  63. IRBESARTAN [Suspect]
     Active Substance: IRBESARTAN
     Dates: start: 20100912
  64. IRBESARTAN [Suspect]
     Active Substance: IRBESARTAN
  65. IRBESARTAN [Suspect]
     Active Substance: IRBESARTAN
     Dates: start: 20100912
  66. IRBESARTAN [Suspect]
     Active Substance: IRBESARTAN
     Dates: start: 20100917
  67. IRBESARTAN [Suspect]
     Active Substance: IRBESARTAN
     Dates: start: 20100917
  68. IRBESARTAN [Suspect]
     Active Substance: IRBESARTAN
     Dates: start: 20100917
  69. IRBESARTAN [Suspect]
     Active Substance: IRBESARTAN
  70. IRBESARTAN [Suspect]
     Active Substance: IRBESARTAN
  71. IRBESARTAN [Suspect]
     Active Substance: IRBESARTAN
     Dates: start: 20100917
  72. IRBESARTAN [Suspect]
     Active Substance: IRBESARTAN
     Dates: start: 20100912
  73. IRBESARTAN [Suspect]
     Active Substance: IRBESARTAN
     Dates: start: 20100917
  74. IRBESARTAN [Suspect]
     Active Substance: IRBESARTAN
     Dates: start: 20100912
  75. PHYLLOCONTIN [Suspect]
     Active Substance: AMINOPHYLLINE
     Indication: Product used for unknown indication
     Dates: start: 20100917
  76. PHYLLOCONTIN [Suspect]
     Active Substance: AMINOPHYLLINE
     Dates: start: 20100917
  77. PHYLLOCONTIN [Suspect]
     Active Substance: AMINOPHYLLINE
     Dates: start: 20200917
  78. PHYLLOCONTIN [Suspect]
     Active Substance: AMINOPHYLLINE
  79. PHYLLOCONTIN [Suspect]
     Active Substance: AMINOPHYLLINE
  80. PHYLLOCONTIN [Suspect]
     Active Substance: AMINOPHYLLINE
  81. PHYLLOCONTIN [Suspect]
     Active Substance: AMINOPHYLLINE
     Dates: start: 20200917
  82. CARBOCYSTEINE [Suspect]
     Active Substance: CARBOCYSTEINE
     Indication: Rheumatoid arthritis
     Dates: start: 20100917
  83. CARBOCYSTEINE [Suspect]
     Active Substance: CARBOCYSTEINE
     Dates: start: 20200917
  84. CARBOCYSTEINE [Suspect]
     Active Substance: CARBOCYSTEINE
  85. CARBOCYSTEINE [Suspect]
     Active Substance: CARBOCYSTEINE
  86. CARBOCYSTEINE [Suspect]
     Active Substance: CARBOCYSTEINE
     Dates: start: 20100917
  87. CARBOCYSTEINE [Suspect]
     Active Substance: CARBOCYSTEINE
     Dates: start: 20200917
  88. CARBOCYSTEINE [Suspect]
     Active Substance: CARBOCYSTEINE
     Dates: start: 20200917
  89. CARBOCYSTEINE [Suspect]
     Active Substance: CARBOCYSTEINE
     Dates: start: 20210917
  90. CARBOCYSTEINE [Suspect]
     Active Substance: CARBOCYSTEINE
     Dates: start: 20120917
  91. CARBOCYSTEINE [Suspect]
     Active Substance: CARBOCYSTEINE
  92. CARBOCYSTEINE [Suspect]
     Active Substance: CARBOCYSTEINE
  93. CARBOCYSTEINE [Suspect]
     Active Substance: CARBOCYSTEINE
  94. CARBOCYSTEINE [Suspect]
     Active Substance: CARBOCYSTEINE
  95. CARBOCYSTEINE [Suspect]
     Active Substance: CARBOCYSTEINE
     Dates: start: 20120917
  96. CARBOCYSTEINE [Suspect]
     Active Substance: CARBOCYSTEINE
     Dates: start: 20210917
  97. CARBAMAZEPINE [Suspect]
     Active Substance: CARBAMAZEPINE
     Indication: Depression
  98. CARBAMAZEPINE [Suspect]
     Active Substance: CARBAMAZEPINE
  99. CARBAMAZEPINE [Suspect]
     Active Substance: CARBAMAZEPINE
  100. CARBAMAZEPINE [Suspect]
     Active Substance: CARBAMAZEPINE
     Dates: start: 20200917
  101. CARBAMAZEPINE [Suspect]
     Active Substance: CARBAMAZEPINE
  102. CARBAMAZEPINE [Suspect]
     Active Substance: CARBAMAZEPINE
     Dates: start: 20210917
  103. CARBAMAZEPINE [Suspect]
     Active Substance: CARBAMAZEPINE
     Dates: start: 20100917
  104. DIPHENYLGUANIDINE [Suspect]
     Active Substance: DIPHENYLGUANIDINE
     Indication: Abdominal discomfort
  105. DIPHENYLGUANIDINE [Suspect]
     Active Substance: DIPHENYLGUANIDINE
     Indication: Depression
  106. DIPHENYLGUANIDINE [Suspect]
     Active Substance: DIPHENYLGUANIDINE
  107. DIPHENYLGUANIDINE [Suspect]
     Active Substance: DIPHENYLGUANIDINE
  108. DIPHENYLGUANIDINE [Suspect]
     Active Substance: DIPHENYLGUANIDINE
  109. DIPHENYLGUANIDINE [Suspect]
     Active Substance: DIPHENYLGUANIDINE
  110. DIPHENYLGUANIDINE [Suspect]
     Active Substance: DIPHENYLGUANIDINE
  111. ZINC OXIDE [Suspect]
     Active Substance: ZINC OXIDE
     Indication: Depression
  112. ZINC OXIDE [Suspect]
     Active Substance: ZINC OXIDE
     Indication: Abdominal discomfort
  113. ZINC OXIDE [Suspect]
     Active Substance: ZINC OXIDE
  114. ZINC OXIDE [Suspect]
     Active Substance: ZINC OXIDE
  115. ZINC OXIDE [Suspect]
     Active Substance: ZINC OXIDE
  116. ZINC OXIDE [Suspect]
     Active Substance: ZINC OXIDE
  117. ZINC OXIDE [Suspect]
     Active Substance: ZINC OXIDE
  118. ZINC OXIDE [Suspect]
     Active Substance: ZINC OXIDE
  119. ZINC OXIDE [Suspect]
     Active Substance: ZINC OXIDE
  120. VENLAFAXINE HYDROCHLORIDE [Suspect]
     Active Substance: VENLAFAXINE HYDROCHLORIDE
     Indication: Depression
  121. VENLAFAXINE HYDROCHLORIDE [Suspect]
     Active Substance: VENLAFAXINE HYDROCHLORIDE
     Indication: Rheumatoid arthritis
  122. VENLAFAXINE HYDROCHLORIDE [Suspect]
     Active Substance: VENLAFAXINE HYDROCHLORIDE
  123. VENLAFAXINE HYDROCHLORIDE [Suspect]
     Active Substance: VENLAFAXINE HYDROCHLORIDE
  124. CARBAMAZEPINE [Suspect]
     Active Substance: CARBAMAZEPINE
     Indication: Depression
  125. CARBAMAZEPINE [Suspect]
     Active Substance: CARBAMAZEPINE
     Indication: Rheumatoid arthritis
  126. CARBAMAZEPINE [Suspect]
     Active Substance: CARBAMAZEPINE
  127. CARBAMAZEPINE [Suspect]
     Active Substance: CARBAMAZEPINE
     Dates: start: 20100917
  128. CARBAMAZEPINE [Suspect]
     Active Substance: CARBAMAZEPINE
     Dates: start: 20200917
  129. CARBAMAZEPINE [Suspect]
     Active Substance: CARBAMAZEPINE
     Dates: start: 20210917
  130. CARBAMAZEPINE [Suspect]
     Active Substance: CARBAMAZEPINE
  131. CARBAMAZEPINE [Suspect]
     Active Substance: CARBAMAZEPINE
  132. CARBAMAZEPINE [Suspect]
     Active Substance: CARBAMAZEPINE
     Dates: start: 20100917
  133. CARBAMAZEPINE [Suspect]
     Active Substance: CARBAMAZEPINE
     Dates: start: 20210917
  134. CARBAMAZEPINE [Suspect]
     Active Substance: CARBAMAZEPINE
     Dates: start: 20100917
  135. CARBAMAZEPINE [Suspect]
     Active Substance: CARBAMAZEPINE
  136. CARBAMAZEPINE [Suspect]
     Active Substance: CARBAMAZEPINE
     Dates: start: 20200917
  137. GUANIDINE [Suspect]
     Active Substance: GUANIDINE
     Indication: Abdominal discomfort
     Dosage: 1,3-DIPHENYLGUANIDINE
  138. GUANIDINE [Suspect]
     Active Substance: GUANIDINE
     Indication: Depression
     Dosage: 1,3-DIPHENYLGUANIDINE
  139. GUANIDINE [Suspect]
     Active Substance: GUANIDINE
     Dosage: 1,3-DIPHENYLGUANIDINE
  140. GUANIDINE [Suspect]
     Active Substance: GUANIDINE
  141. GUANIDINE [Suspect]
     Active Substance: GUANIDINE
     Dosage: 1,3-DIPHENYLGUANIDINE
  142. GUANIDINE [Suspect]
     Active Substance: GUANIDINE
  143. GUANIDINE [Suspect]
     Active Substance: GUANIDINE
  144. GUANIDINE [Suspect]
     Active Substance: GUANIDINE
  145. GUANIDINE [Suspect]
     Active Substance: GUANIDINE
  146. CIPROFLOXACIN HYDROCHLORIDE [Suspect]
     Active Substance: CIPROFLOXACIN HYDROCHLORIDE
     Indication: Depression
     Dates: start: 20100917
  147. CIPROFLOXACIN HYDROCHLORIDE [Suspect]
     Active Substance: CIPROFLOXACIN HYDROCHLORIDE
     Indication: Rheumatoid arthritis
     Dates: start: 20100917
  148. CIPROFLOXACIN HYDROCHLORIDE [Suspect]
     Active Substance: CIPROFLOXACIN HYDROCHLORIDE
     Indication: Abdominal discomfort
     Dates: start: 20200917
  149. CIPROFLOXACIN HYDROCHLORIDE [Suspect]
     Active Substance: CIPROFLOXACIN HYDROCHLORIDE
  150. CIPROFLOXACIN HYDROCHLORIDE [Suspect]
     Active Substance: CIPROFLOXACIN HYDROCHLORIDE
  151. CIPROFLOXACIN HYDROCHLORIDE [Suspect]
     Active Substance: CIPROFLOXACIN HYDROCHLORIDE
  152. CIPROFLOXACIN HYDROCHLORIDE [Suspect]
     Active Substance: CIPROFLOXACIN HYDROCHLORIDE
  153. CIPROFLOXACIN HYDROCHLORIDE [Suspect]
     Active Substance: CIPROFLOXACIN HYDROCHLORIDE
  154. CIPROFLOXACIN HYDROCHLORIDE [Suspect]
     Active Substance: CIPROFLOXACIN HYDROCHLORIDE
  155. CIPROFLOXACIN HYDROCHLORIDE [Suspect]
     Active Substance: CIPROFLOXACIN HYDROCHLORIDE
     Dates: start: 20200917
  156. CIPROFLOXACIN HYDROCHLORIDE [Suspect]
     Active Substance: CIPROFLOXACIN HYDROCHLORIDE
     Dates: start: 20100917
  157. CIPROFLOXACIN HYDROCHLORIDE [Suspect]
     Active Substance: CIPROFLOXACIN HYDROCHLORIDE
     Dates: start: 20100917
  158. CIPROFLOXACIN HYDROCHLORIDE [Suspect]
     Active Substance: CIPROFLOXACIN HYDROCHLORIDE
     Dates: start: 20200917
  159. CIPROFLOXACIN HYDROCHLORIDE [Suspect]
     Active Substance: CIPROFLOXACIN HYDROCHLORIDE
     Dates: start: 20200917
  160. CIPROFLOXACIN HYDROCHLORIDE [Suspect]
     Active Substance: CIPROFLOXACIN HYDROCHLORIDE
     Dates: start: 20200917
  161. CIPROFLOXACIN HYDROCHLORIDE [Suspect]
     Active Substance: CIPROFLOXACIN HYDROCHLORIDE
     Dates: start: 20200917
  162. CIPROFLOXACIN HYDROCHLORIDE [Suspect]
     Active Substance: CIPROFLOXACIN HYDROCHLORIDE
     Dates: start: 20100917
  163. ZINC [Suspect]
     Active Substance: ZINC
     Indication: Abdominal discomfort
     Dosage: DIETHYLDITHIOCARBAMATE
  164. ZINC [Suspect]
     Active Substance: ZINC
     Indication: Depression
     Dosage: DIETHYLDITHIOCARBAMATE
  165. ZINC [Suspect]
     Active Substance: ZINC
  166. ZINC [Suspect]
     Active Substance: ZINC
  167. ZINC [Suspect]
     Active Substance: ZINC
  168. SULFAGUANIDINE [Suspect]
     Active Substance: SULFAGUANIDINE
     Indication: Abdominal discomfort
  169. SULFAGUANIDINE [Suspect]
     Active Substance: SULFAGUANIDINE
  170. SULFAGUANIDINE [Suspect]
     Active Substance: SULFAGUANIDINE
  171. SULFAGUANIDINE [Suspect]
     Active Substance: SULFAGUANIDINE
  172. SULFAGUANIDINE [Suspect]
     Active Substance: SULFAGUANIDINE
  173. AMINOPHYLLINE [Suspect]
     Active Substance: AMINOPHYLLINE
     Indication: Product used for unknown indication
     Dates: start: 20100917
  174. AMINOPHYLLINE [Suspect]
     Active Substance: AMINOPHYLLINE
     Dates: start: 20200917
  175. AMINOPHYLLINE [Suspect]
     Active Substance: AMINOPHYLLINE
     Dates: start: 20100917
  176. AMINOPHYLLINE [Suspect]
     Active Substance: AMINOPHYLLINE
  177. AMINOPHYLLINE [Suspect]
     Active Substance: AMINOPHYLLINE
  178. AMINOPHYLLINE [Suspect]
     Active Substance: AMINOPHYLLINE
  179. AMINOPHYLLINE [Suspect]
     Active Substance: AMINOPHYLLINE
  180. CHARCOAL ACTIVATED [Suspect]
     Active Substance: ACTIVATED CHARCOAL
     Indication: Product used for unknown indication
  181. CHARCOAL ACTIVATED [Suspect]
     Active Substance: ACTIVATED CHARCOAL
  182. CHARCOAL ACTIVATED [Suspect]
     Active Substance: ACTIVATED CHARCOAL
  183. CHARCOAL ACTIVATED [Suspect]
     Active Substance: ACTIVATED CHARCOAL
  184. CHARCOAL ACTIVATED [Suspect]
     Active Substance: ACTIVATED CHARCOAL
  185. CHARCOAL ACTIVATED [Suspect]
     Active Substance: ACTIVATED CHARCOAL
  186. CHARCOAL ACTIVATED [Suspect]
     Active Substance: ACTIVATED CHARCOAL
  187. CHARCOAL ACTIVATED [Suspect]
     Active Substance: ACTIVATED CHARCOAL
  188. CHARCOAL ACTIVATED [Suspect]
     Active Substance: ACTIVATED CHARCOAL
  189. CHARCOAL ACTIVATED [Suspect]
     Active Substance: ACTIVATED CHARCOAL
  190. CHARCOAL ACTIVATED [Suspect]
     Active Substance: ACTIVATED CHARCOAL
  191. THEOPHYLLINE [Suspect]
     Active Substance: THEOPHYLLINE
     Indication: Depression
  192. THEOPHYLLINE [Suspect]
     Active Substance: THEOPHYLLINE
     Indication: Abdominal discomfort
  193. THEOPHYLLINE [Suspect]
     Active Substance: THEOPHYLLINE
  194. AMOXICILLIN [Suspect]
     Active Substance: AMOXICILLIN
     Indication: Abdominal discomfort
     Dosage: 125 MG/ 5 ML
     Dates: start: 20210904
  195. AMOXICILLIN [Suspect]
     Active Substance: AMOXICILLIN
     Dosage: 125 MG /5 ML
  196. AMOXICILLIN [Suspect]
     Active Substance: AMOXICILLIN
     Dates: start: 20210904
  197. AMOXICILLIN [Suspect]
     Active Substance: AMOXICILLIN
     Dosage: 125 MG/ 5 ML
     Dates: start: 20210904
  198. AMOXICILLIN [Suspect]
     Active Substance: AMOXICILLIN
     Dosage: 125 MG/ 5 ML
     Dates: start: 20210904
  199. PROBIOTICS NOS [Suspect]
     Active Substance: PROBIOTICS NOS
     Indication: Abdominal discomfort
  200. PROBIOTICS NOS [Suspect]
     Active Substance: PROBIOTICS NOS
     Indication: Depression
  201. PROBIOTICS NOS [Suspect]
     Active Substance: PROBIOTICS NOS
     Indication: Pituitary tumour
  202. VENLAFAXINE [Suspect]
     Active Substance: VENLAFAXINE HYDROCHLORIDE
     Indication: Rheumatoid arthritis
  203. VENLAFAXINE [Suspect]
     Active Substance: VENLAFAXINE HYDROCHLORIDE
     Indication: Abdominal discomfort
  204. VENLAFAXINE [Suspect]
     Active Substance: VENLAFAXINE HYDROCHLORIDE
  205. VENLAFAXINE [Suspect]
     Active Substance: VENLAFAXINE HYDROCHLORIDE
  206. VENLAFAXINE [Suspect]
     Active Substance: VENLAFAXINE HYDROCHLORIDE
  207. VENLAFAXINE [Suspect]
     Active Substance: VENLAFAXINE HYDROCHLORIDE
  208. VENLAFAXINE [Suspect]
     Active Substance: VENLAFAXINE HYDROCHLORIDE
  209. VENLAFAXINE [Suspect]
     Active Substance: VENLAFAXINE HYDROCHLORIDE
  210. BIFIDOBACTERIUM LONGUM [Suspect]
     Active Substance: BIFIDOBACTERIUM LONGUM
     Indication: Abdominal discomfort
  211. BIFIDOBACTERIUM LONGUM [Suspect]
     Active Substance: BIFIDOBACTERIUM LONGUM
     Indication: Depression
  212. BIFIDOBACTERIUM LONGUM [Suspect]
     Active Substance: BIFIDOBACTERIUM LONGUM
  213. BIFIDOBACTERIUM LONGUM [Suspect]
     Active Substance: BIFIDOBACTERIUM LONGUM
  214. BIFIDOBACTERIUM LONGUM [Suspect]
     Active Substance: BIFIDOBACTERIUM LONGUM
  215. BIFIDOBACTERIUM LONGUM [Suspect]
     Active Substance: BIFIDOBACTERIUM LONGUM
  216. SIMETHICONE (DIMETHICONE) [Suspect]
     Active Substance: DIMETHICONE
     Indication: Product used for unknown indication
  217. ACTIVATED CHARCOAL [Concomitant]
     Active Substance: ACTIVATED CHARCOAL
  218. CABERGOLINE [Concomitant]
     Active Substance: CABERGOLINE
     Indication: Pituitary tumour
  219. CABERGOLINE [Concomitant]
     Active Substance: CABERGOLINE
     Indication: Empty sella syndrome
  220. CABERGOLINE [Concomitant]
     Active Substance: CABERGOLINE
     Indication: Rheumatoid arthritis
  221. CABERGOLINE [Concomitant]
     Active Substance: CABERGOLINE
  222. CABERGOLINE [Concomitant]
     Active Substance: CABERGOLINE
  223. CABERGOLINE [Concomitant]
     Active Substance: CABERGOLINE
  224. CABERGOLINE [Concomitant]
     Active Substance: CABERGOLINE
  225. LEVOTHYROXINE [Concomitant]
     Active Substance: LEVOTHYROXINE\LEVOTHYROXINE SODIUM
     Indication: Abdominal discomfort
  226. LEVOTHYROXINE [Concomitant]
     Active Substance: LEVOTHYROXINE\LEVOTHYROXINE SODIUM
     Indication: Pituitary tumour
  227. LEVOTHYROXINE [Concomitant]
     Active Substance: LEVOTHYROXINE\LEVOTHYROXINE SODIUM
     Indication: Empty sella syndrome
  228. LEVOTHYROXINE [Concomitant]
     Active Substance: LEVOTHYROXINE\LEVOTHYROXINE SODIUM
  229. LEVOTHYROXINE [Concomitant]
     Active Substance: LEVOTHYROXINE\LEVOTHYROXINE SODIUM
  230. BENDROFLUMETHIAZIDE [Concomitant]
     Active Substance: BENDROFLUMETHIAZIDE
     Indication: Pituitary tumour
  231. BENDROFLUMETHIAZIDE [Concomitant]
     Active Substance: BENDROFLUMETHIAZIDE
     Indication: Depression
  232. BENDROFLUMETHIAZIDE [Concomitant]
     Active Substance: BENDROFLUMETHIAZIDE
  233. BENDROFLUMETHIAZIDE [Concomitant]
     Active Substance: BENDROFLUMETHIAZIDE
  234. BENDROFLUMETHIAZIDE [Concomitant]
     Active Substance: BENDROFLUMETHIAZIDE
  235. CETIRIZINE [Concomitant]
     Active Substance: CETIRIZINE HYDROCHLORIDE
     Indication: Abdominal discomfort
  236. CETIRIZINE [Concomitant]
     Active Substance: CETIRIZINE HYDROCHLORIDE
     Indication: Rheumatoid arthritis
  237. CETIRIZINE [Concomitant]
     Active Substance: CETIRIZINE HYDROCHLORIDE
  238. CETIRIZINE [Concomitant]
     Active Substance: CETIRIZINE HYDROCHLORIDE
  239. EZETIMIBE [Concomitant]
     Active Substance: EZETIMIBE
  240. EZETIMIBE [Concomitant]
     Active Substance: EZETIMIBE
  241. EZETIMIBE [Concomitant]
     Active Substance: EZETIMIBE
     Dosage: MYCLIC PEN
     Dates: start: 20210917
  242. EZETIMIBE [Concomitant]
     Active Substance: EZETIMIBE
     Dosage: MYCLIC PEN
     Dates: start: 20210917
  243. EZETIMIBE [Concomitant]
     Active Substance: EZETIMIBE
     Dosage: MYCLIC PEN
     Dates: start: 20100917
  244. EZETIMIBE [Concomitant]
     Active Substance: EZETIMIBE
  245. EZETIMIBE [Concomitant]
     Active Substance: EZETIMIBE
  246. ORUVAIL [Concomitant]
     Active Substance: KETOPROFEN
     Indication: Empty sella syndrome
  247. ORUVAIL [Concomitant]
     Active Substance: KETOPROFEN
  248. ORUVAIL [Concomitant]
     Active Substance: KETOPROFEN
  249. ORUVAIL [Concomitant]
     Active Substance: KETOPROFEN
  250. ORUVAIL [Concomitant]
     Active Substance: KETOPROFEN
  251. ORUVAIL [Concomitant]
     Active Substance: KETOPROFEN
  252. FOLIC ACID [Concomitant]
     Active Substance: FOLIC ACID
     Indication: Rheumatoid arthritis
  253. FOLIC ACID [Concomitant]
     Active Substance: FOLIC ACID
  254. FOLIC ACID [Concomitant]
     Active Substance: FOLIC ACID
  255. FOLIC ACID [Concomitant]
     Active Substance: FOLIC ACID
  256. FOLIC ACID [Concomitant]
     Active Substance: FOLIC ACID
  257. CHARCOAL ACTIVATED [Concomitant]
     Active Substance: ACTIVATED CHARCOAL
  258. CHARCOAL ACTIVATED [Concomitant]
     Active Substance: ACTIVATED CHARCOAL
     Dosage: QD
  259. CHARCOAL ACTIVATED [Concomitant]
     Active Substance: ACTIVATED CHARCOAL
     Dosage: QD
  260. CHARCOAL ACTIVATED [Concomitant]
     Active Substance: ACTIVATED CHARCOAL
     Dosage: QD
  261. CHARCOAL ACTIVATED [Concomitant]
     Active Substance: ACTIVATED CHARCOAL
     Dosage: QD
  262. CHARCOAL ACTIVATED [Concomitant]
     Active Substance: ACTIVATED CHARCOAL
     Dosage: QD
  263. DOXYCYCLINE [Concomitant]
     Active Substance: DOXYCYCLINE\DOXYCYCLINE HYCLATE
     Indication: Pulmonary pain
  264. THEOPHYLLINE [Concomitant]
     Active Substance: THEOPHYLLINE
     Indication: Depression
  265. THEOPHYLLINE [Concomitant]
     Active Substance: THEOPHYLLINE
     Indication: Abdominal discomfort
  266. THEOPHYLLINE [Concomitant]
     Active Substance: THEOPHYLLINE
  267. KETOPROFEN [Concomitant]
     Active Substance: KETOPROFEN
  268. DIETARY SUPPLEMENT [Concomitant]
     Active Substance: DIETARY SUPPLEMENT
  269. DIETARY SUPPLEMENT [Concomitant]
     Active Substance: DIETARY SUPPLEMENT
  270. DIETARY SUPPLEMENT [Concomitant]
     Active Substance: DIETARY SUPPLEMENT
  271. DIETARY SUPPLEMENT [Concomitant]
     Active Substance: DIETARY SUPPLEMENT

REACTIONS (10)
  - Medication error [Unknown]
  - Drug abuse [Unknown]
  - Intentional product misuse [Unknown]
  - Lower respiratory tract infection [Not Recovered/Not Resolved]
  - Pulmonary pain [Unknown]
  - Arthropathy [Unknown]
  - Rash [Not Recovered/Not Resolved]
  - Abdominal discomfort [Unknown]
  - Amyloid arthropathy [Unknown]
  - Obesity [Unknown]

NARRATIVE: CASE EVENT DATE: 20201001
